FAERS Safety Report 13571408 (Version 7)
Quarter: 2018Q4

REPORT INFORMATION
  Report Type: Spontaneous
  Country: US (occurrence: US)
  Receive Date: 20170523
  Receipt Date: 20181113
  Transmission Date: 20190204
  Serious: Yes (Other)
  Sender: FDA-Public Use
  Company Number: US-PFIZER INC-2017217911

PATIENT
  Age: 72 Year
  Sex: Female

DRUGS (14)
  1. FOLIC ACID. [Concomitant]
     Active Substance: FOLIC ACID
     Dosage: UNK
  2. XELJANZ [Suspect]
     Active Substance: TOFACITINIB CITRATE
     Indication: ARTHRITIS
     Dosage: UNK, 5X2
     Dates: start: 2014
  3. XELJANZ [Suspect]
     Active Substance: TOFACITINIB CITRATE
     Dosage: 5 MG, UNK
     Dates: start: 201708
  4. LOSARTAN. [Concomitant]
     Active Substance: LOSARTAN
     Indication: BLOOD PRESSURE ABNORMAL
     Dosage: UNK
     Dates: start: 2008
  5. LEVOFLOXACIN. [Concomitant]
     Active Substance: LEVOFLOXACIN
     Indication: DEPRESSION
     Dosage: UNK
     Dates: start: 2005
  6. LEVOFLOXACIN. [Concomitant]
     Active Substance: LEVOFLOXACIN
     Indication: BLOOD PRESSURE MEASUREMENT
  7. XELJANZ [Suspect]
     Active Substance: TOFACITINIB CITRATE
     Indication: RHEUMATOID ARTHRITIS
     Dosage: 5 MG, UNK
  8. DILTIA [Concomitant]
     Indication: HEART RATE ABNORMAL
     Dosage: UNK
     Dates: start: 2002
  9. AMIOD [Concomitant]
     Indication: HEART RATE ABNORMAL
     Dosage: UNK
     Dates: start: 2012
  10. LEVOTHYROXINE. [Concomitant]
     Active Substance: LEVOTHYROXINE
     Indication: THYROID DISORDER
     Dosage: UNK
     Dates: start: 1995
  11. ELIQUIS [Concomitant]
     Active Substance: APIXABAN
     Indication: ANTICOAGULANT THERAPY
     Dosage: UNK
     Dates: start: 2013
  12. SIMVAS [Concomitant]
     Indication: BLOOD CHOLESTEROL ABNORMAL
     Dosage: UNK
     Dates: start: 2014
  13. HCTZ [Concomitant]
     Active Substance: HYDROCHLOROTHIAZIDE
     Indication: BLOOD PRESSURE INCREASED
     Dosage: UNK
     Dates: start: 1980
  14. VITAMIN D [Concomitant]
     Active Substance: CHOLECALCIFEROL
     Dosage: UNK

REACTIONS (7)
  - Bone pain [Unknown]
  - Arthralgia [Unknown]
  - Rheumatoid arthritis [Not Recovered/Not Resolved]
  - Spinal fracture [Unknown]
  - Haemorrhage [Unknown]
  - Bone disorder [Unknown]
  - Musculoskeletal discomfort [Unknown]
